FAERS Safety Report 16813991 (Version 2)
Quarter: 2019Q3

REPORT INFORMATION
  Report Type: Spontaneous
  Country: US (occurrence: US)
  Receive Date: 20190917
  Receipt Date: 20190920
  Transmission Date: 20191005
  Serious: No
  Sender: FDA-Public Use
  Company Number: US-BIOGEN-2019BI00785925

PATIENT
  Sex: Female

DRUGS (1)
  1. AVONEX [Suspect]
     Active Substance: INTERFERON BETA-1A
     Indication: MULTIPLE SCLEROSIS
     Route: 065
     Dates: start: 20000801

REACTIONS (3)
  - Multiple allergies [Not Recovered/Not Resolved]
  - Memory impairment [Not Recovered/Not Resolved]
  - Allergy to metals [Not Recovered/Not Resolved]

NARRATIVE: CASE EVENT DATE: 2019
